FAERS Safety Report 20665483 (Version 2)
Quarter: 2022Q3

REPORT INFORMATION
  Report Type: Spontaneous
  Country: US (occurrence: US)
  Receive Date: 20220402
  Receipt Date: 20220625
  Transmission Date: 20221027
  Serious: No
  Sender: FDA-Public Use
  Company Number: US-NOVARTISTESTPH-NVSC2022US074568

PATIENT
  Sex: Female

DRUGS (1)
  1. COSENTYX [Suspect]
     Active Substance: SECUKINUMAB
     Indication: Psoriasis
     Dosage: 300 MG, QMO
     Route: 058
     Dates: start: 202202, end: 202202

REACTIONS (4)
  - Pruritus [Recovered/Resolved]
  - Rash [Recovered/Resolved]
  - Throat irritation [Recovered/Resolved]
  - Lip swelling [Recovered/Resolved]
